FAERS Safety Report 5313128-9 (Version None)
Quarter: 2007Q1

REPORT INFORMATION
  Report Type: 
  Country: None (occurrence: None)
  Receive Date: 20070201
  Receipt Date: 20061107
  Transmission Date: 20070707
  Serious: No
  Sender: FDA-Public Use
  Company Number: VNL_0287_2006

PATIENT
  Sex: Male

DRUGS (1)
  1. APOKYN [Suspect]
     Dosage: DF
     Dates: start: 20060822, end: 20061007

REACTIONS (2)
  - DRUG INEFFECTIVE [None]
  - PHARMACEUTICAL PRODUCT COMPLAINT [None]
